FAERS Safety Report 13962626 (Version 2)
Quarter: 2017Q4

REPORT INFORMATION
  Report Type: Report from Study
  Country: None (occurrence: CA)
  Receive Date: 20170913
  Receipt Date: 20171010
  Transmission Date: 20180320
  Serious: Yes (Hospitalization)
  Sender: FDA-Public Use
  Company Number: CA-ABBVIE-17K-028-2095431-00

PATIENT
  Age: 6 Year
  Sex: Female

DRUGS (5)
  1. HUMIRA [Suspect]
     Active Substance: ADALIMUMAB
     Indication: JUVENILE IDIOPATHIC ARTHRITIS
     Route: 058
     Dates: start: 20161209, end: 20170818
  2. METHOTREXATE. [Concomitant]
     Active Substance: METHOTREXATE
     Indication: JUVENILE IDIOPATHIC ARTHRITIS
     Route: 058
     Dates: start: 2013, end: 2017
  3. FOLIC ACID. [Concomitant]
     Active Substance: FOLIC ACID
     Indication: JUVENILE IDIOPATHIC ARTHRITIS
     Route: 048
     Dates: start: 2013, end: 2017
  4. ONDANSETRON [Concomitant]
     Active Substance: ONDANSETRON
     Indication: JUVENILE IDIOPATHIC ARTHRITIS
     Route: 048
     Dates: start: 2013, end: 2017
  5. ONDANSETRON [Concomitant]
     Active Substance: ONDANSETRON
     Indication: NAUSEA

REACTIONS (4)
  - Gastroenteritis [Recovered/Resolved]
  - Hypoaesthesia [Not Recovered/Not Resolved]
  - Impaired gastric emptying [Recovered/Resolved]
  - Vomiting [Not Recovered/Not Resolved]

NARRATIVE: CASE EVENT DATE: 201708
